FAERS Safety Report 5471053-7 (Version None)
Quarter: 2007Q3

REPORT INFORMATION
  Report Type: 
  Country: None (occurrence: None)
  Receive Date: 20070928
  Receipt Date: 20061031
  Transmission Date: 20080115
  Serious: No
  Sender: FDA-Public Use
  Company Number: A0625658A

PATIENT
  Age: 59 Year
  Sex: Female

DRUGS (4)
  1. LAMICTAL [Suspect]
     Indication: BIPOLAR DISORDER
     Dosage: 5MG PER DAY
     Route: 048
     Dates: start: 20050101
  2. SEROQUEL [Concomitant]
  3. SONATA [Concomitant]
  4. KLONOPIN [Concomitant]

REACTIONS (5)
  - BRUXISM [None]
  - FATIGUE [None]
  - INSOMNIA [None]
  - MIGRAINE [None]
  - RASH [None]
